FAERS Safety Report 26158583 (Version 1)
Quarter: 2025Q4

REPORT INFORMATION
  Report Type: Spontaneous
  Country: US (occurrence: US)
  Receive Date: 20251215
  Receipt Date: 20251215
  Transmission Date: 20260118
  Serious: No
  Sender: INSUD PHARMA
  Company Number: US-INSUD PHARMA-2512US10165

PATIENT

DRUGS (2)
  1. PROGESTERONE [Suspect]
     Active Substance: PROGESTERONE
     Indication: Product used for unknown indication
     Dosage: ONE 100MG CAPSULE EVERY NIGHT AT BEDTIME
     Route: 048
     Dates: start: 20251102
  2. PROGESTERONE [Suspect]
     Active Substance: PROGESTERONE
     Dosage: ONE 100MG CAPSULE EVERY NIGHT AT BEDTIME
     Route: 048

REACTIONS (4)
  - Abdominal discomfort [Unknown]
  - Hot flush [Unknown]
  - Drug ineffective [Unknown]
  - Suspected product quality issue [Unknown]

NARRATIVE: CASE EVENT DATE: 20251102
